FAERS Safety Report 26093854 (Version 1)
Quarter: 2025Q4

REPORT INFORMATION
  Report Type: Spontaneous
  Country: US (occurrence: US)
  Receive Date: 20251126
  Receipt Date: 20251126
  Transmission Date: 20260117
  Serious: No
  Sender: GLENMARK
  Company Number: US-GLENMARK PHARMACEUTICALS-2025GMK099754

PATIENT

DRUGS (1)
  1. OXCARBAZEPINE [Suspect]
     Active Substance: OXCARBAZEPINE
     Indication: Product used for unknown indication
     Dosage: UNK (FORMULATION: FILM COATED TABLET)
     Route: 065

REACTIONS (5)
  - Hypersomnia [Unknown]
  - Hangover [Unknown]
  - Fatigue [Unknown]
  - Somnolence [Unknown]
  - Product substitution issue [Unknown]
